FAERS Safety Report 26157899 (Version 1)
Quarter: 2025Q4

REPORT INFORMATION
  Report Type: Report from Study
  Country: US (occurrence: None)
  Receive Date: 20251215
  Receipt Date: 20251215
  Transmission Date: 20260117
  Serious: Yes (Other)
  Sender: UCB
  Company Number: US-UCBSA-2025078737

PATIENT
  Age: 36 Year

DRUGS (3)
  1. LEVETIRACETAM [Suspect]
     Active Substance: LEVETIRACETAM
     Indication: Epilepsy
     Dosage: INITIAL DOSE
     Route: 061
  2. LEVETIRACETAM [Suspect]
     Active Substance: LEVETIRACETAM
     Indication: Seizure
     Dosage: DOSE INCREASE OVER THE COURSE OF YEARS
     Route: 061
  3. LEVETIRACETAM [Suspect]
     Active Substance: LEVETIRACETAM
     Dosage: 1500 MILLIGRAM, 2X/DAY (BID)
     Route: 061

REACTIONS (5)
  - Seizure [Unknown]
  - Fall [Unknown]
  - Back injury [Unknown]
  - Drug resistance [Unknown]
  - Product use issue [Unknown]
